FAERS Safety Report 4646219-6 (Version None)
Quarter: 2005Q2

REPORT INFORMATION
  Report Type: 
  Country: None (occurrence: None)
  Receive Date: 20050422
  Receipt Date: 20050422
  Transmission Date: 20051028
  Serious: No
  Sender: FDA-Public Use
  Company Number: None

PATIENT
  Sex: Male
  Weight: 86.9 kg

DRUGS (5)
  1. FLUOROURACIL [Suspect]
     Indication: RECTAL CANCER
     Dosage: 1050 MG
     Route: 040
     Dates: start: 20050209, end: 20050225
  2. XELODA [Suspect]
     Dosage: 124800 MG
     Dates: start: 20041004, end: 20041117
  3. CAMPTOSAR [Suspect]
     Dosage: SEE IMAGE
     Dates: start: 20041004, end: 20041101
  4. CAMPTOSAR [Suspect]
     Dosage: SEE IMAGE
     Dates: start: 20050204, end: 20050223
  5. LEUCOVORIN CALCIUM [Suspect]
     Dosage: 1640 MG
     Dates: start: 20050209, end: 20050225

REACTIONS (6)
  - BACK PAIN [None]
  - DEHYDRATION [None]
  - DIARRHOEA [None]
  - HYPOKALAEMIA [None]
  - NEUROPATHY PERIPHERAL [None]
  - WEIGHT DECREASED [None]
